FAERS Safety Report 6693890-3 (Version None)
Quarter: 2010Q2

REPORT INFORMATION
  Report Type: 
  Country: None (occurrence: None)
  Receive Date: 20100423
  Receipt Date: 20100415
  Transmission Date: 20101027
  Serious: Yes (Other)
  Sender: FDA-Public Use
  Company Number: PHHY2010AU23976

PATIENT
  Sex: Female

DRUGS (1)
  1. ACLASTA [Suspect]
     Dosage: 5 MG
     Route: 042

REACTIONS (6)
  - CHILLS [None]
  - DECREASED APPETITE [None]
  - HALLUCINATION [None]
  - INFLUENZA LIKE ILLNESS [None]
  - INFUSION SITE REACTION [None]
  - NAUSEA [None]
